FAERS Safety Report 8970038 (Version 1)
Quarter: 2012Q4

REPORT INFORMATION
  Report Type: 
  Country: JP (occurrence: JP)
  Receive Date: 20121217
  Receipt Date: 20121217
  Transmission Date: 20130627
  Serious: Yes (Hospitalization, Other)
  Sender: FDA-Public Use
  Company Number: JP-ROCHE-1150152

PATIENT
  Age: 61 Year
  Sex: Male
  Weight: 61 kg

DRUGS (6)
  1. AVASTIN [Suspect]
     Indication: NON-SMALL CELL LUNG CANCER
     Route: 041
     Dates: start: 20110826, end: 201202
  2. AVASTIN [Suspect]
     Route: 041
     Dates: start: 20120215, end: 20121010
  3. AVASTIN [Suspect]
     Route: 041
     Dates: start: 20121031
  4. PARAPLATIN [Concomitant]
     Indication: LUNG ADENOCARCINOMA METASTATIC
     Route: 041
     Dates: start: 20110826, end: 20120214
  5. TAXOL [Concomitant]
     Indication: LUNG ADENOCARCINOMA METASTATIC
     Route: 041
     Dates: start: 20110826, end: 20120214
  6. TS-1 [Concomitant]
     Indication: LUNG ADENOCARCINOMA METASTATIC
     Route: 048
     Dates: start: 20120404, end: 20121010

REACTIONS (2)
  - Appendicitis perforated [Recovering/Resolving]
  - Faecalith [Unknown]
